FAERS Safety Report 4455539-X (Version None)
Quarter: 2004Q3

REPORT INFORMATION
  Report Type: 
  Country: None (occurrence: None)
  Receive Date: 20040917
  Receipt Date: 20040830
  Transmission Date: 20050211
  Serious: Yes (Death, Life-Threatening, Hospitalization)
  Sender: FDA-Public Use
  Company Number: DE_040713949

PATIENT
  Age: 43 Year
  Sex: Female

DRUGS (6)
  1. ZYPREXA [Suspect]
     Indication: AGITATION
     Dosage: 10 MG/1 DAY
     Dates: start: 20040709
  2. ZYPREXA [Suspect]
     Indication: SCHIZOPHRENIA
     Dosage: 10 MG/1 DAY
     Dates: start: 20040709
  3. HALDOL-JANSSEN DECANOAT (HALOPERIDOL DECANOATE) [Concomitant]
  4. HALDOL ^JANSSEN-CILAG^ (HALOPERIDOL) [Concomitant]
  5. LORAZEPAM [Concomitant]
  6. HALDOL(HALOPEIDOL) [Concomitant]

REACTIONS (4)
  - ARRHYTHMIA [None]
  - CARDIAC ARREST [None]
  - SYNCOPE [None]
  - VENTRICULAR FIBRILLATION [None]
